FAERS Safety Report 5243102-2 (Version None)
Quarter: 2007Q1

REPORT INFORMATION
  Report Type: 
  Country: None (occurrence: None)
  Receive Date: 20070221
  Receipt Date: 20070209
  Transmission Date: 20070707
  Serious: Yes (Other)
  Sender: FDA-Public Use
  Company Number: JP-PFIZER INC-2007012320

PATIENT

DRUGS (12)
  1. ZYVOX [Suspect]
     Indication: SEPSIS
     Route: 048
     Dates: start: 20070127, end: 20070205
  2. ALL OTHER THERAPEUTIC PRODUCTS [Concomitant]
     Route: 048
  3. ALLOPURINOL SODIUM [Concomitant]
     Route: 048
  4. URSO [Concomitant]
     Route: 048
  5. ALL OTHER THERAPEUTIC PRODUCTS [Concomitant]
     Route: 048
  6. CYANOCOBALAMIN [Concomitant]
  7. PURSENNID [Concomitant]
     Route: 048
  8. LASIX [Concomitant]
  9. PERSANTIN [Concomitant]
  10. CELTECT [Concomitant]
     Route: 048
  11. ALESION [Concomitant]
     Route: 048
  12. POSTERISAN FORTE [Concomitant]

REACTIONS (2)
  - HALLUCINATION [None]
  - PLATELET COUNT DECREASED [None]
